FAERS Safety Report 7917244-4 (Version None)
Quarter: 2011Q4

REPORT INFORMATION
  Report Type: 
  Country: None (occurrence: None)
  Receive Date: 20111116
  Receipt Date: 20111102
  Transmission Date: 20120403
  Serious: Yes (Other)
  Sender: FDA-Public Use
  Company Number: PHHY2011BR098733

PATIENT
  Age: 29 Year
  Sex: Female

DRUGS (3)
  1. CYCLOSPORINE [Suspect]
     Indication: BEHCET'S SYNDROME
     Dosage: 3.7 MG/KG, QD
  2. PREDNISONE [Concomitant]
     Dosage: 60 MG, QD
     Route: 048
  3. CYCLOSPORINE [Suspect]
     Dosage: 5 MG/KG, QD

REACTIONS (4)
  - VISUAL ACUITY REDUCED [None]
  - NEPHROPATHY TOXIC [None]
  - LEUKOPENIA [None]
  - MOUTH ULCERATION [None]
